FAERS Safety Report 16059419 (Version 1)
Quarter: 2019Q1

REPORT INFORMATION
  Report Type: Spontaneous
  Country: US (occurrence: US)
  Receive Date: 20190311
  Receipt Date: 20190311
  Transmission Date: 20190418
  Serious: Yes (Death, Hospitalization, Other)
  Sender: FDA-Public Use
  Company Number: US-ACTELION-A-NJ2019-187111

PATIENT
  Sex: Female

DRUGS (14)
  1. CALCIUM [Concomitant]
     Active Substance: CALCIUM
     Dosage: 500 MG
  2. IRON [Concomitant]
     Active Substance: IRON
  3. UPTRAVI [Suspect]
     Active Substance: SELEXIPAG
     Indication: PULMONARY HYPERTENSION
     Route: 048
  4. BUMETANIDE. [Concomitant]
     Active Substance: BUMETANIDE
  5. VITAMINS NOS [Concomitant]
     Active Substance: VITAMINS
  6. REVATIO [Suspect]
     Active Substance: SILDENAFIL CITRATE
     Dosage: 80 MG, TID
     Route: 048
     Dates: start: 2016
  7. POTASSIUM [Concomitant]
     Active Substance: POTASSIUM
  8. VISION SHIELD EYE HEALTH [Concomitant]
  9. REVATIO [Suspect]
     Active Substance: SILDENAFIL CITRATE
     Dosage: 40 UNK
     Route: 048
     Dates: start: 20100402
  10. JANUVIA [Concomitant]
     Active Substance: SITAGLIPTIN PHOSPHATE
  11. LEVOTHYROXINE. [Concomitant]
     Active Substance: LEVOTHYROXINE
  12. ATORVASTATIN [Concomitant]
     Active Substance: ATORVASTATIN
  13. REVATIO [Suspect]
     Active Substance: SILDENAFIL CITRATE
     Indication: PULMONARY HYPERTENSION
     Dosage: 20 MG, TID
     Route: 048
     Dates: start: 20170311
  14. ORENITRAM [Concomitant]
     Active Substance: TREPROSTINIL
     Dosage: UNK
     Dates: end: 20170923

REACTIONS (6)
  - Dyspnoea [Unknown]
  - Renal impairment [Unknown]
  - Oxygen saturation decreased [Fatal]
  - Oedema [Unknown]
  - Fluid retention [Unknown]
  - Dysentery [Unknown]

NARRATIVE: CASE EVENT DATE: 20170302
